FAERS Safety Report 15754918 (Version 4)
Quarter: 2019Q1

REPORT INFORMATION
  Report Type: Report from Study
  Country: GB (occurrence: GB)
  Receive Date: 20181224
  Receipt Date: 20190208
  Transmission Date: 20190417
  Serious: Yes (Death, Other)
  Sender: FDA-Public Use
  Company Number: GB-ACCORD-097059

PATIENT
  Sex: Male

DRUGS (7)
  1. QUETIAPINE. [Suspect]
     Active Substance: QUETIAPINE
     Dosage: MISUSE,MEDICATION ERROR
     Route: 048
  2. GABAPENTIN. [Suspect]
     Active Substance: GABAPENTIN
     Dosage: MISUSE,MEDICATION ERROR
     Route: 065
  3. DIAZEPAM. [Suspect]
     Active Substance: DIAZEPAM
     Dosage: MISUSE,MEDICATION ERROR
     Route: 065
  4. HYOSCINE [Suspect]
     Active Substance: SCOPOLAMINE
     Dosage: MISUSE,MEDICATION ERROR
     Route: 065
  5. PREGABALIN. [Suspect]
     Active Substance: PREGABALIN
     Dosage: MISUSE,MEDICATION ERROR
     Route: 065
  6. BUPRENORPHINE. [Suspect]
     Active Substance: BUPRENORPHINE
     Dosage: MISUSE,MEDICATION ERROR
     Route: 065
  7. METHADONE [Suspect]
     Active Substance: METHADONE HYDROCHLORIDE
     Dosage: MISUSE,MEDICATION ERROR
     Route: 065

REACTIONS (5)
  - Intentional product misuse [Unknown]
  - Toxicity to various agents [Unknown]
  - Syncope [Fatal]
  - Death [Fatal]
  - Prescription drug used without a prescription [Unknown]
